FAERS Safety Report 5958808-7 (Version None)
Quarter: 2008Q4

REPORT INFORMATION
  Report Type: 
  Country: None (occurrence: None)
  Receive Date: 20081117
  Receipt Date: 20081031
  Transmission Date: 20090506
  Serious: Yes (Death)
  Sender: FDA-Public Use
  Company Number: 2008US003058

PATIENT
  Age: 58 Year
  Sex: Female

DRUGS (36)
  1. PROGRAF [Suspect]
     Indication: LUNG TRANSPLANT
     Dosage: SEE IMAGE
     Route: 048
     Dates: start: 20041129, end: 20041207
  2. PROGRAF [Suspect]
     Indication: LUNG TRANSPLANT
     Dosage: SEE IMAGE
     Route: 048
     Dates: start: 20041214, end: 20041229
  3. PROGRAF [Suspect]
     Indication: LUNG TRANSPLANT
     Dosage: SEE IMAGE
     Route: 048
     Dates: start: 20041229, end: 20050104
  4. PROGRAF [Suspect]
     Indication: LUNG TRANSPLANT
     Dosage: SEE IMAGE
     Route: 048
     Dates: start: 20050104, end: 20050119
  5. PROGRAF [Suspect]
     Indication: LUNG TRANSPLANT
     Dosage: SEE IMAGE
     Route: 048
     Dates: start: 20050119, end: 20050419
  6. PROGRAF [Suspect]
     Indication: LUNG TRANSPLANT
     Dosage: SEE IMAGE
     Route: 048
     Dates: start: 20050419, end: 20060124
  7. PROGRAF [Suspect]
     Indication: LUNG TRANSPLANT
     Dosage: SEE IMAGE
     Route: 048
     Dates: start: 20060124, end: 20060505
  8. PROGRAF [Suspect]
     Indication: LUNG TRANSPLANT
     Dosage: SEE IMAGE
     Route: 048
     Dates: start: 20060505
  9. COMBIVENT [Concomitant]
  10. ADVAIR DISKUS 100/50 [Concomitant]
  11. MONTELUKAST SODIUM [Concomitant]
  12. BENZONATATE [Concomitant]
  13. GUAIFENESIN [Concomitant]
  14. OMEPRAZOLE [Concomitant]
  15. AMITRIPTYLINE HYDROCHLORIDE [Concomitant]
  16. IBUPROFEN TABLETS [Concomitant]
  17. ASPIRIN [Concomitant]
  18. ATORVASTATIN CALCIUM [Concomitant]
  19. AMIODARONE (AMIDARONE) [Concomitant]
  20. XANAX [Concomitant]
  21. PREDNISONE [Concomitant]
  22. IMURAN [Concomitant]
  23. DAPSONE [Concomitant]
  24. MYCOSTATIN [Concomitant]
  25. LANSOPRAZOLE [Concomitant]
  26. VALTREX(VALAICLOVIR HYDROCHLORIDE) [Concomitant]
  27. MULTIVITAMIN [Concomitant]
  28. CALCIUM [Concomitant]
  29. MAGNESIUM OXIDE [Concomitant]
  30. FUROSEMIDE [Concomitant]
  31. POTASSIUM CHLORIDE [Concomitant]
  32. ALENDRONATE SODIUM [Concomitant]
  33. MYCOPHENOLATE MOFETIL [Concomitant]
  34. CLONAZEPAM [Concomitant]
  35. FLUTICASONE PROPIONATE [Concomitant]
  36. CYCLOBENZAPRINE [Concomitant]

REACTIONS (1)
  - CEREBROVASCULAR ACCIDENT [None]
